FAERS Safety Report 7193648-5 (Version None)
Quarter: 2010Q4

REPORT INFORMATION
  Report Type: 
  Country: None (occurrence: None)
  Receive Date: 20101223
  Receipt Date: 20101215
  Transmission Date: 20110411
  Serious: Yes (Death, Life-Threatening, Hospitalization)
  Sender: FDA-Public Use
  Company Number: GB-TEVA-260499ISR

PATIENT
  Sex: Male

DRUGS (5)
  1. PREDNISOLONE [Suspect]
     Indication: PROSTATE CANCER METASTATIC
     Route: 048
     Dates: start: 20090212
  2. PREDNISOLONE [Suspect]
     Route: 048
     Dates: start: 20090530
  3. PREDNISOLONE [Suspect]
     Route: 048
     Dates: start: 20090630, end: 20090701
  4. ABIRATERONE ACETATE/ PLACEBO (BLINDED STUDY) [Suspect]
     Dates: start: 20090604, end: 20090724
  5. ABIRATERONE ACETATE/ PLACEBO (BLINDED STUDY) [Suspect]
     Dates: start: 20090630

REACTIONS (4)
  - ATRIAL FIBRILLATION [None]
  - CARDIAC ARREST [None]
  - SEPSIS [None]
  - SMALL INTESTINAL PERFORATION [None]
